FAERS Safety Report 4979745-0 (Version None)
Quarter: 2006Q2

REPORT INFORMATION
  Report Type: 
  Country: None (occurrence: None)
  Receive Date: 20060418
  Receipt Date: 20060410
  Transmission Date: 20061013
  Serious: Yes (Death)
  Sender: FDA-Public Use
  Company Number: 2006037369

PATIENT
  Age: 64 Year
  Sex: Female

DRUGS (5)
  1. CELEBREX [Suspect]
     Indication: ARTHRALGIA
     Dosage: ORAL
     Route: 048
     Dates: end: 20060101
  2. CELEBREX [Suspect]
     Indication: JOINT SWELLING
     Dosage: ORAL
     Route: 048
     Dates: end: 20060101
  3. ANTIDEPRESSANTS [Concomitant]
  4. CARDIOVASCULAR SYSTEM DRUGS [Concomitant]
  5. ANTIHYPERTENSIVES [Concomitant]

REACTIONS (1)
  - CARDIAC ARREST [None]
